FAERS Safety Report 8943783 (Version 4)
Quarter: 2013Q3

REPORT INFORMATION
  Report Type: Spontaneous
  Country: GB (occurrence: GB)
  Receive Date: 20121203
  Receipt Date: 20130913
  Transmission Date: 20140515
  Serious: Yes (Death)
  Sender: FDA-Public Use
  Company Number: GB-GLAXOSMITHKLINE-B0847514A

PATIENT
  Age: 68 Year
  Sex: Male

DRUGS (2)
  1. AVANDIA [Suspect]
     Indication: TYPE 2 DIABETES MELLITUS
     Route: 065
  2. AVANDAMET [Suspect]
     Indication: TYPE 2 DIABETES MELLITUS
     Route: 065

REACTIONS (11)
  - Myocardial ischaemia [Fatal]
  - Diabetes mellitus [Fatal]
  - Right ventricular failure [Fatal]
  - Circulatory collapse [Unknown]
  - Injury [Unknown]
  - Adverse drug reaction [Unknown]
  - Joint swelling [Unknown]
  - Feeling abnormal [Unknown]
  - Dyspnoea [Unknown]
  - Fluid retention [Unknown]
  - Dysstasia [Unknown]
